FAERS Safety Report 20407466 (Version 3)
Quarter: 2022Q1

REPORT INFORMATION
  Report Type: Report from Study
  Country: US (occurrence: US)
  Receive Date: 20220131
  Receipt Date: 20220314
  Transmission Date: 20220423
  Serious: Yes (Hospitalization)
  Sender: FDA-Public Use
  Company Number: US-PFIZER INC-202200148577

PATIENT
  Age: 73 Year
  Sex: Male
  Weight: 73 kg

DRUGS (46)
  1. FLUDARABINE PHOSPHATE [Suspect]
     Active Substance: FLUDARABINE PHOSPHATE
     Indication: Diffuse large B-cell lymphoma
     Dosage: 45 MG, 1X/DAY
     Route: 042
     Dates: start: 20210812, end: 20210812
  2. FLUDARABINE PHOSPHATE [Suspect]
     Active Substance: FLUDARABINE PHOSPHATE
     Dosage: 45 MG, 1X/DAY
     Route: 042
     Dates: start: 20210813, end: 20210813
  3. FLUDARABINE PHOSPHATE [Suspect]
     Active Substance: FLUDARABINE PHOSPHATE
     Dosage: 45 MG, 1X/DAY
     Route: 042
     Dates: start: 20210814, end: 20210814
  4. CYCLOPHOSPHAMIDE [Suspect]
     Active Substance: CYCLOPHOSPHAMIDE
     Indication: Diffuse large B-cell lymphoma
     Dosage: 560 MG, 1X/DAY
     Route: 042
     Dates: start: 20210812, end: 20210812
  5. CYCLOPHOSPHAMIDE [Suspect]
     Active Substance: CYCLOPHOSPHAMIDE
     Dosage: 560 MG, 1X/DAY
     Route: 042
     Dates: start: 20210813, end: 20210813
  6. CYCLOPHOSPHAMIDE [Suspect]
     Active Substance: CYCLOPHOSPHAMIDE
     Dosage: 560 MG, 1X/DAY
     Route: 042
     Dates: start: 20210814, end: 20210814
  7. INVESTIGATIONAL PRODUCT [Suspect]
     Active Substance: INVESTIGATIONAL PRODUCT
     Indication: Diffuse large B-cell lymphoma
     Dosage: 18.2 ML, ONCE
     Route: 042
     Dates: start: 20210817, end: 20210817
  8. ALENDRONATE [Concomitant]
     Active Substance: ALENDRONATE SODIUM
     Indication: Prophylaxis
     Dosage: 70 MG, WEEKLY, 1 IN 1 WK
     Route: 048
  9. ALLOPURINOL [Concomitant]
     Active Substance: ALLOPURINOL
     Indication: Prophylaxis
     Dosage: 300 MG, CYCLIC (1 IN 2 D)
     Route: 048
  10. AMITRIPTYLINE [Concomitant]
     Active Substance: AMITRIPTYLINE
     Indication: Prophylaxis
     Dosage: 75 MG, 1X/DAY, 1 IN 1 D
     Route: 048
  11. CALCIUM CARBONATE [Concomitant]
     Active Substance: CALCIUM CARBONATE
     Indication: Prophylaxis
     Dosage: 600 MG, 2X/DAY (2 IN 1 D)
     Route: 048
  12. ESOMEPRAZOLE [Concomitant]
     Active Substance: ESOMEPRAZOLE
     Indication: Prophylaxis
     Dosage: 20 MG, 1X/DAY
     Route: 048
  13. METFORMIN [Concomitant]
     Active Substance: METFORMIN HYDROCHLORIDE
     Indication: Type 2 diabetes mellitus
     Dosage: 750 MG, 2X/DAY
     Route: 048
  14. MIDODRINE [Concomitant]
     Active Substance: MIDODRINE
     Indication: Orthostatic hypotension
     Dosage: 2.5 MG, 3X/DAY (1 IN 8 HR)
     Route: 048
  15. SULFAMETHOXAZOLE\TRIMETHOPRIM [Concomitant]
     Active Substance: SULFAMETHOXAZOLE\TRIMETHOPRIM
     Indication: Prophylaxis
     Dosage: [SULFAMETHOXAZOLE 800MG]/[TRIMETHOPRIM 160MG], CYCLIC (3 IN 1 WK)
     Route: 048
  16. ALUMINIUM/MAGNESIUM HYDROXIDE/SIMETICONE [Concomitant]
     Indication: Prophylaxis
     Dosage: 30 ML, 4X/DAY (1 IN 6 HRS)
     Route: 048
     Dates: start: 20210917, end: 20210924
  17. DAPTOMYCIN [Concomitant]
     Active Substance: DAPTOMYCIN
     Indication: Prophylaxis
     Dosage: 400 MG, AS NEEDED
     Route: 042
     Dates: start: 20210919, end: 20210923
  18. DIATRIZOATE MEGLUMINE\DIATRIZOATE SODIUM [Concomitant]
     Active Substance: DIATRIZOATE MEGLUMINE\DIATRIZOATE SODIUM
     Indication: Ultrasound abdomen
     Dosage: 15 ML, 2X/DAY (1 IN 12 HRS)
     Route: 048
     Dates: start: 20210916, end: 20210916
  19. ENOXAPARIN [Concomitant]
     Active Substance: ENOXAPARIN
     Indication: Deep vein thrombosis
     Dosage: 1.5, 40 MG/KG, CYCLIC (1 IN 2 D)
     Route: 058
     Dates: start: 20210914, end: 20210924
  20. FLUDROCORTISONE [Concomitant]
     Active Substance: FLUDROCORTISONE
     Indication: Prophylaxis
     Dosage: 0.1 MG, CYCLIC (1 IN 2D)
     Route: 048
     Dates: start: 20210606
  21. GABAPENTIN [Concomitant]
     Active Substance: GABAPENTIN
     Indication: Post herpetic neuralgia
     Dosage: 1200 MG, 3X/DAY
     Route: 048
     Dates: start: 20210512
  22. GABAPENTIN [Concomitant]
     Active Substance: GABAPENTIN
     Dosage: 1200 MG, 3X/DAY (1 IN 8 HOURS)
     Route: 048
     Dates: start: 20211011, end: 20211021
  23. GLUCAGON [Concomitant]
     Active Substance: GLUCAGON
     Indication: Type 2 diabetes mellitus
     Dosage: 1 MG, 3X/DAY
     Route: 030
     Dates: start: 20210812, end: 20210924
  24. HYDRALAZINE [Concomitant]
     Active Substance: HYDRALAZINE HYDROCHLORIDE
     Indication: Hypertension
     Dosage: 25 MG, ONCE
     Route: 048
     Dates: start: 20210922, end: 20210922
  25. HYDROCORTISONE [Concomitant]
     Active Substance: HYDROCORTISONE
     Indication: Eosinophilic pustular folliculitis
     Dosage: 0.5 %, 2X/DAY
     Route: 061
     Dates: start: 20210912, end: 20210924
  26. INSULIN GLARGINE [Concomitant]
     Active Substance: INSULIN GLARGINE
     Indication: Type 2 diabetes mellitus
     Dosage: 1 TO 10 PRESSOR UNITS, 3X/DAY
     Route: 058
     Dates: start: 20210421, end: 20210924
  27. LEVETIRACETAM [Concomitant]
     Active Substance: LEVETIRACETAM
     Indication: Prophylaxis
     Dosage: 500 MG, 2X/DAY (1 IN 12 HRS)
     Dates: start: 20210812, end: 20210923
  28. MAGNESIUM OXIDE [Concomitant]
     Active Substance: MAGNESIUM OXIDE
     Indication: Mineral supplementation
     Dosage: 800 MG, ONCE
     Route: 048
     Dates: start: 20210908, end: 20210908
  29. MAGNESIUM OXIDE [Concomitant]
     Active Substance: MAGNESIUM OXIDE
     Indication: Hypomagnesaemia
     Dosage: 400 MG, ONCE
     Route: 048
     Dates: start: 20210917, end: 20210917
  30. MAGNESIUM OXIDE [Concomitant]
     Active Substance: MAGNESIUM OXIDE
     Dosage: 400 MG, ONCE
     Route: 048
     Dates: start: 20210922, end: 20210922
  31. MAGNESIUM SULFATE [Concomitant]
     Active Substance: MAGNESIUM SULFATE
     Indication: Mineral supplementation
     Dosage: 1 G, ONCE
     Route: 042
     Dates: start: 20210814, end: 20210814
  32. MAGNESIUM SULFATE [Concomitant]
     Active Substance: MAGNESIUM SULFATE
     Indication: Hypomagnesaemia
     Dosage: 2G, ONCE
     Route: 042
     Dates: start: 20210912, end: 20210923
  33. OLANZAPINE [Concomitant]
     Active Substance: OLANZAPINE
     Indication: Substance-induced psychotic disorder
     Dosage: 2.5 MG, AS NEEDED
     Route: 048
     Dates: start: 20210904, end: 20210924
  34. PANTOPRAZOLE [Concomitant]
     Active Substance: PANTOPRAZOLE
     Indication: Prophylaxis
     Dosage: 40 MG, CYCLIC ( 1 IN 2 DAYS)
     Route: 048
     Dates: start: 20210812, end: 20210924
  35. POTASSIUM CHLORIDE [Concomitant]
     Active Substance: POTASSIUM CHLORIDE
     Indication: Prophylaxis
     Dosage: 20 MEQ, ONCE
     Route: 048
     Dates: start: 20210814, end: 20210815
  36. POTASSIUM CHLORIDE [Concomitant]
     Active Substance: POTASSIUM CHLORIDE
     Dosage: 40 MEQ, ONCE
     Route: 048
     Dates: start: 20210831, end: 20210923
  37. SODIUM CHLORIDE [Concomitant]
     Active Substance: SODIUM CHLORIDE
     Indication: Prophylaxis
     Dosage: 0.9 %, AS NEEDED
     Route: 042
     Dates: start: 20210812, end: 20210921
  38. TBO-FILGRASTIM [Concomitant]
     Active Substance: TBO-FILGRASTIM
     Indication: Neutrophil count decreased
     Dosage: 300 MG, AS NEEDED
     Route: 058
     Dates: start: 20210910, end: 20210916
  39. TRAMADOL [Concomitant]
     Active Substance: TRAMADOL
     Indication: Post herpetic neuralgia
     Dosage: 25 MG, ONCE
     Route: 048
     Dates: start: 20210821, end: 20210821
  40. TRAMADOL [Concomitant]
     Active Substance: TRAMADOL
     Indication: Aggression
     Dosage: 50 MG, ONCE
     Route: 048
     Dates: start: 20210911, end: 20210924
  41. TRIAMCINOLONE [Concomitant]
     Active Substance: TRIAMCINOLONE
     Indication: Prophylaxis
     Dosage: 0.1 %, 2X/DAY, EXTERNAL CREAM
     Route: 061
     Dates: start: 20210912, end: 20210912
  42. VALACYCLOVIR [Concomitant]
     Active Substance: VALACYCLOVIR HYDROCHLORIDE
     Indication: Prophylaxis
     Dosage: 500 MG, 2X/DAY
     Route: 048
     Dates: start: 20210812
  43. VANCOMYCIN [Concomitant]
     Active Substance: VANCOMYCIN
     Indication: Prophylaxis
     Dosage: 1000 MG, 2X/DAY (1 IN 12 HRS)
     Route: 042
     Dates: start: 20210828, end: 20210919
  44. VANCOMYCIN [Concomitant]
     Active Substance: VANCOMYCIN
     Dosage: 1250 MG, 2X/DAY (1 IN 12 HRS)
     Route: 042
     Dates: start: 20210915, end: 20210917
  45. VITAMIN B12 [Concomitant]
     Active Substance: CYANOCOBALAMIN
     Indication: Supplementation therapy
     Dosage: 1000 MG, CYCLIC (1X 2 DAYS)
     Route: 048
     Dates: start: 20210820
  46. LORAZEPAM [Concomitant]
     Active Substance: LORAZEPAM
     Indication: Anxiety
     Dosage: UNK
     Dates: start: 20210913, end: 20210914

REACTIONS (1)
  - Mental status changes [Recovered/Resolved]

NARRATIVE: CASE EVENT DATE: 20211011
